FAERS Safety Report 6782101-6 (Version None)
Quarter: 2010Q2

REPORT INFORMATION
  Report Type: 
  Country: None (occurrence: None)
  Receive Date: 20100615
  Receipt Date: 20100602
  Transmission Date: 20101027
  Serious: Yes (Hospitalization)
  Sender: FDA-Public Use
  Company Number: 2009030035

PATIENT
  Age: 84 Year
  Sex: Male
  Weight: 82 kg

DRUGS (7)
  1. TORSEMIDE [Suspect]
     Indication: OEDEMA PERIPHERAL
     Dosage: 10 MG (10 MG, 1 IN 1 D), ORAL
     Route: 048
     Dates: end: 20090116
  2. THEOPHYLLINE [Suspect]
     Indication: CHRONIC OBSTRUCTIVE PULMONARY DISEASE
     Dosage: 500 MG (250 MG, 2 IN 1 D), ORAL
     Route: 048
     Dates: start: 19880101
  3. TAMSULOSIN HCL [Concomitant]
  4. ISOSORBIDE MONONITRATE [Concomitant]
  5. ALLOPURINOL [Concomitant]
  6. PANTOPRAZOLE SODIUM [Concomitant]
  7. MUCOFALK (PSYLLIUM HYDROPHILIC MUCILLOID) [Concomitant]

REACTIONS (11)
  - ANTITHROMBIN III INCREASED [None]
  - BLOOD HOMOCYSTEINE INCREASED [None]
  - COLITIS [None]
  - DEEP VEIN THROMBOSIS [None]
  - DEHYDRATION [None]
  - DIARRHOEA [None]
  - DRUG INTERACTION [None]
  - FIBRIN D DIMER INCREASED [None]
  - PROTHROMBIN TIME PROLONGED [None]
  - PULMONARY EMBOLISM [None]
  - THROMBOPHLEBITIS SUPERFICIAL [None]
